FAERS Safety Report 8412388-5 (Version None)
Quarter: 2012Q2

REPORT INFORMATION
  Report Type: 
  Country: None (occurrence: None)
  Receive Date: 20120531
  Receipt Date: 20120531
  Transmission Date: 20120825
  Serious: Yes (Hospitalization)
  Sender: FDA-Public Use
  Company Number: None

PATIENT
  Sex: Female
  Weight: 56.2 kg

DRUGS (6)
  1. RITUXIMAB (MOAB C2B8 ANTI CD20, CHIMERIC) [Suspect]
     Dosage: 630 MG
  2. PREDNISONE [Suspect]
     Dosage: 920 MG
  3. CYCLOPHOSPHAMIDE [Suspect]
     Dosage: 1148 MG
  4. VINCRISTINE SULFATE [Suspect]
     Dosage: 1.2 MG
  5. DOXORUBICIN HYDROCHLORIDE [Suspect]
     Dosage: 31 MG
  6. ETOPOSIDE [Suspect]
     Dosage: 153 MG

REACTIONS (6)
  - ANAEMIA [None]
  - THROMBOCYTOPENIA [None]
  - DEHYDRATION [None]
  - STRONGYLOIDIASIS [None]
  - NEUTROPENIA [None]
  - ENTERITIS [None]
